FAERS Safety Report 6029301-0 (Version None)
Quarter: 2009Q1

REPORT INFORMATION
  Report Type: 
  Country: None (occurrence: None)
  Receive Date: 20090106
  Receipt Date: 20081216
  Transmission Date: 20090719
  Serious: No
  Sender: FDA-Public Use
  Company Number: US-B.I. PHARMACEUTICALS,INC./RIDGEFIELD-2008-BP-18755BP

PATIENT
  Sex: Female

DRUGS (3)
  1. CATAPRES-TTS-1 [Suspect]
     Indication: HYPERTENSION
     Dosage: .3MG
     Route: 061
     Dates: start: 20080101, end: 20080101
  2. COZAAR [Concomitant]
     Indication: HYPERTENSION
  3. NORVASC [Concomitant]
     Indication: HYPERTENSION

REACTIONS (1)
  - RASH GENERALISED [None]
